FAERS Safety Report 4981134-X (Version None)
Quarter: 2006Q1

REPORT INFORMATION
  Report Type: 
  Country: None (occurrence: None)
  Receive Date: 20060227
  Receipt Date: 20050223
  Transmission Date: 20060701
  Serious: Yes (Hospitalization, Disabling)
  Sender: FDA-Public Use
  Company Number: WAES 0502USA03083

PATIENT
  Sex: Male

DRUGS (1)
  1. ZOCOR [Suspect]
     Dosage: 20 MG PO
     Route: 048
     Dates: start: 20030101, end: 20030201

REACTIONS (2)
  - MYOPATHY [None]
  - RHABDOMYOLYSIS [None]
